FAERS Safety Report 5620304-4 (Version None)
Quarter: 2008Q1

REPORT INFORMATION
  Report Type: 
  Country: None (occurrence: None)
  Receive Date: 20080208
  Receipt Date: 20080131
  Transmission Date: 20080703
  Serious: Yes (Other)
  Sender: FDA-Public Use
  Company Number: PHBS2008NL01082

PATIENT
  Sex: Female
  Weight: 62 kg

DRUGS (3)
  1. RITALIN [Suspect]
     Indication: ATTENTION DEFICIT/HYPERACTIVITY DISORDER
     Dosage: 10 MG, 5QD
     Dates: start: 19990622, end: 20080102
  2. VALPROIC ACID [Concomitant]
     Dosage: 500 MG, BID
     Route: 065
     Dates: start: 19940101
  3. OMEPRAZOLE [Concomitant]
     Dosage: 20 MG, BID
     Route: 065
     Dates: start: 20070220

REACTIONS (2)
  - NEURALGIA [None]
  - RAYNAUD'S PHENOMENON [None]
